FAERS Safety Report 15589254 (Version 1)
Quarter: 2018Q4

REPORT INFORMATION
  Report Type: Spontaneous
  Country: GB (occurrence: GB)
  Receive Date: 20181106
  Receipt Date: 20181106
  Transmission Date: 20190205
  Serious: Yes (Other)
  Sender: FDA-Public Use
  Company Number: GB-INCYTE CORPORATION-2018IN011268

PATIENT

DRUGS (1)
  1. JAKAVI [Suspect]
     Active Substance: RUXOLITINIB
     Indication: MYELOFIBROSIS
     Dosage: UNK
     Route: 065

REACTIONS (8)
  - Aspergillus infection [Unknown]
  - Onychomycosis [Unknown]
  - Malignant neoplasm progression [Unknown]
  - Cough [Unknown]
  - Blood count abnormal [Unknown]
  - Dyspnoea [Unknown]
  - Weight decreased [Unknown]
  - Myelofibrosis [Unknown]
